FAERS Safety Report 7011792-X (Version None)
Quarter: 2010Q3

REPORT INFORMATION
  Report Type: 
  Country: None (occurrence: None)
  Receive Date: 20100923
  Receipt Date: 20090716
  Transmission Date: 20110219
  Serious: No
  Sender: FDA-Public Use
  Company Number: US-WYE-H10200009

PATIENT
  Age: 43 Year
  Sex: Female

DRUGS (1)
  1. PREMARIN [Suspect]
     Indication: MENOPAUSE
     Dosage: 0.5 GM (FREQUENCY UNSPECIFIED)
     Route: 067
     Dates: start: 20090626

REACTIONS (1)
  - ERYTHEMA NODOSUM [None]
